FAERS Safety Report 9095878 (Version 1)
Quarter: 2013Q1

REPORT INFORMATION
  Report Type: Spontaneous
  Country: US (occurrence: US)
  Receive Date: 20130220
  Receipt Date: 20130220
  Transmission Date: 20140127
  Serious: Yes (Hospitalization, Other)
  Sender: FDA-Public Use
  Company Number: US-BAYER-2013-021169

PATIENT
  Age: 65 Year
  Sex: Male

DRUGS (11)
  1. ACETYLSALICYLIC ACID({=100 MG) [Suspect]
     Indication: CARDIOVASCULAR EVENT PROPHYLAXIS
     Dosage: 81 MG, QD
     Dates: start: 2002
  2. NAPROXEN SODIUM ({= 220 MG) [Interacting]
     Dosage: 220 MG, UNK
  3. ROSUVASTATIN [Concomitant]
     Dosage: DAILY DOSE 20 MG
  4. VALSARTAN [Concomitant]
     Dosage: DAILY DOSE 80 MG
  5. EZETIMIBE [Concomitant]
     Dosage: DAILY DOSE 10 MG
  6. FISH OIL [Concomitant]
     Dosage: DAILY DOSE 1 G
  7. MULTIVITAMINS, COMBINATIONS [Concomitant]
     Dosage: 1 DF, QD
  8. COENZYME Q10 [Concomitant]
  9. L-CARNITINE [Concomitant]
  10. LIPOIC ACID [Concomitant]
  11. VITAMIN E [Concomitant]

REACTIONS (3)
  - Upper gastrointestinal haemorrhage [Recovered/Resolved]
  - Gastrointestinal ulcer [Recovered/Resolved]
  - Labelled drug-drug interaction medication error [None]
